FAERS Safety Report 9133678 (Version 1)
Quarter: 2013Q1

REPORT INFORMATION
  Report Type: Spontaneous
  Country: FR (occurrence: FR)
  Receive Date: 20130302
  Receipt Date: 20130302
  Transmission Date: 20140127
  Serious: Yes (Other)
  Sender: FDA-Public Use
  Company Number: FR-TEVA-388706ISR

PATIENT
  Sex: 0

DRUGS (3)
  1. COPAXONE [Suspect]
     Indication: MULTIPLE SCLEROSIS
     Route: 065
     Dates: start: 201111, end: 201201
  2. SOLUMEDROL [Suspect]
     Indication: MULTIPLE SCLEROSIS
     Route: 042
     Dates: start: 2012
  3. SOLUPRED [Suspect]
     Route: 048

REACTIONS (2)
  - Growth retardation [Recovered/Resolved]
  - Premature baby [Recovered/Resolved]
